FAERS Safety Report 24053793 (Version 1)
Quarter: 2024Q3

REPORT INFORMATION
  Report Type: Spontaneous
  Country: US (occurrence: US)
  Receive Date: 20240705
  Receipt Date: 20240705
  Transmission Date: 20241017
  Serious: Yes (Other)
  Sender: MSN LABORATORIES
  Company Number: US-MSNLABS-2024MSNLIT01420

PATIENT

DRUGS (2)
  1. FEBUXOSTAT [Suspect]
     Active Substance: FEBUXOSTAT
     Indication: Gout
     Route: 065
  2. PEGLOTICASE [Concomitant]
     Active Substance: PEGLOTICASE
     Indication: Gout
     Route: 065

REACTIONS (1)
  - Treatment failure [Unknown]
